FAERS Safety Report 18740526 (Version 1)
Quarter: 2021Q1

REPORT INFORMATION
  Report Type: Spontaneous
  Country: FR (occurrence: FR)
  Receive Date: 20210114
  Receipt Date: 20210114
  Transmission Date: 20210419
  Serious: Yes (Death)
  Sender: FDA-Public Use
  Company Number: FR-ACCORD-214650

PATIENT
  Age: 23 Year
  Sex: Female

DRUGS (2)
  1. SERTRALINE [Suspect]
     Active Substance: SERTRALINE HYDROCHLORIDE
     Route: 065
     Dates: end: 2019
  2. TRAMADOL. [Suspect]
     Active Substance: TRAMADOL
     Indication: INTENTIONAL PRODUCT MISUSE
     Route: 065
     Dates: end: 2019

REACTIONS (2)
  - Poisoning deliberate [Fatal]
  - Intentional product misuse [Unknown]
